FAERS Safety Report 9240522 (Version 2)
Quarter: 2013Q2

REPORT INFORMATION
  Report Type: Spontaneous
  Country: US (occurrence: None)
  Receive Date: 20121120
  Receipt Date: 20130220
  Transmission Date: 20140414
  Serious: No
  Sender: FDA-Public Use
  Company Number: 1000039285

PATIENT
  Age: 39 Year
  Sex: Male

DRUGS (8)
  1. VIIBRYD [Suspect]
     Indication: NERVOUSNESS
     Dosage: 1 IN 1 D
     Route: 048
     Dates: start: 20120923, end: 20120929
  2. VIIBRYD [Suspect]
     Indication: ANXIETY
     Dosage: 1 IN 1 D
     Route: 048
     Dates: start: 20120923, end: 20120929
  3. VIIBYRD [Suspect]
     Indication: NERVOUSNESS
     Dosage: 1 IN 1 D
     Route: 048
     Dates: start: 20120930, end: 20121002
  4. VIIBYRD [Suspect]
     Indication: ANXIETY
     Dosage: 1 IN 1 D
     Route: 048
     Dates: start: 20120930, end: 20121002
  5. VIIBYRD [Suspect]
     Indication: NERVOUSNESS
     Dosage: 1 IN 1 D
     Route: 048
     Dates: start: 20121003, end: 20121005
  6. VIIBYRD [Suspect]
     Indication: ANXIETY
     Dosage: 1 IN 1 D
     Route: 048
     Dates: start: 20121003, end: 20121005
  7. VIIBYRD [Suspect]
     Indication: NERVOUSNESS
     Dosage: 1 IN 1 D
     Route: 048
     Dates: start: 20121022, end: 20121123
  8. VIIBYRD [Suspect]
     Indication: ANXIETY
     Dosage: 1 IN 1 D
     Route: 048
     Dates: start: 20121022, end: 20121123

REACTIONS (11)
  - Dizziness [None]
  - Paraesthesia [None]
  - Erectile dysfunction [None]
  - Ejaculation delayed [None]
  - Off label use [None]
  - Nervousness [None]
  - Drug effect increased [None]
  - Dyspepsia [None]
  - Diarrhoea [None]
  - Anxiety [None]
  - Blood cholesterol increased [None]
